FAERS Safety Report 4429000-2 (Version None)
Quarter: 2004Q3

REPORT INFORMATION
  Report Type: 
  Country: None (occurrence: None)
  Receive Date: 20040726
  Receipt Date: 20040315
  Transmission Date: 20050211
  Serious: No
  Sender: FDA-Public Use
  Company Number: USA040362069

PATIENT
  Age: 84 Year
  Sex: Female

DRUGS (3)
  1. FORTEO [Suspect]
     Indication: OSTEOPOROSIS
     Dosage: 20 UG/1 DAY
     Dates: start: 20040209, end: 20040309
  2. PRILOSEC [Concomitant]
  3. CALCIUM [Concomitant]

REACTIONS (2)
  - FATIGUE [None]
  - MUSCLE CRAMP [None]
